FAERS Safety Report 8971684 (Version 1)
Quarter: 2012Q4

REPORT INFORMATION
  Report Type: 
  Country: BR (occurrence: BR)
  Receive Date: 20121217
  Receipt Date: 20121217
  Transmission Date: 20130627
  Serious: Yes (Other)
  Sender: FDA-Public Use
  Company Number: BR-JNJFOC-20121203181

PATIENT
  Sex: Female
  Weight: 53 kg

DRUGS (10)
  1. REMICADE [Suspect]
     Indication: RHEUMATOID ARTHRITIS
     Route: 042
  2. REMICADE [Suspect]
     Indication: RHEUMATOID ARTHRITIS
     Route: 042
     Dates: start: 201112
  3. REMICADE [Suspect]
     Indication: RHEUMATOID ARTHRITIS
     Route: 042
     Dates: start: 201210
  4. METHOTREXATE [Suspect]
     Indication: RHEUMATOID ARTHRITIS
     Route: 065
     Dates: start: 201112
  5. DICLOFENAC SODIUM [Suspect]
     Indication: PAIN
     Route: 065
     Dates: start: 201112
  6. FOLIC ACID [Interacting]
     Indication: PROPHYLAXIS
     Route: 065
     Dates: start: 201112
  7. PREDNISONE [Suspect]
     Indication: INFLAMMATION
     Route: 065
     Dates: start: 201112
  8. CALCIUM [Concomitant]
     Indication: PROPHYLAXIS
     Route: 065
     Dates: start: 201112
  9. VITAMIN D [Concomitant]
     Indication: PROPHYLAXIS
     Route: 065
     Dates: start: 201112
  10. OMEPRAZOLE [Concomitant]
     Indication: PROPHYLAXIS
     Route: 065
     Dates: start: 201112

REACTIONS (10)
  - Gastritis [Not Recovered/Not Resolved]
  - Rheumatoid arthritis [Not Recovered/Not Resolved]
  - Therapeutic response decreased [Unknown]
  - Headache [Not Recovered/Not Resolved]
  - Fatigue [Not Recovered/Not Resolved]
  - Malaise [Not Recovered/Not Resolved]
  - Arthralgia [Not Recovered/Not Resolved]
  - Nausea [Not Recovered/Not Resolved]
  - Vitamin D deficiency [Not Recovered/Not Resolved]
  - Drug interaction [Unknown]
